FAERS Safety Report 9704014 (Version 1)
Quarter: 2013Q4

REPORT INFORMATION
  Report Type: Spontaneous
  Country: US (occurrence: None)
  Receive Date: 20131121
  Receipt Date: 20131121
  Transmission Date: 20140711
  Serious: Yes (Hospitalization)
  Sender: FDA-Public Use
  Company Number: None

PATIENT
  Age: 75 Year
  Sex: Female

DRUGS (1)
  1. NAFCILLIN [Suspect]
     Indication: BACTERAEMIA
     Route: 042
     Dates: start: 20110909, end: 20110914

REACTIONS (1)
  - Tubulointerstitial nephritis [None]
